FAERS Safety Report 20329705 (Version 7)
Quarter: 2025Q2

REPORT INFORMATION
  Report Type: Spontaneous
  Country: PL (occurrence: PL)
  Receive Date: 20220112
  Receipt Date: 20250611
  Transmission Date: 20250716
  Serious: Yes (Death, Life-Threatening, Hospitalization, Other)
  Sender: AUROBINDO
  Company Number: PL-AUROBINDO-AUR-APL-2022-001062

PATIENT
  Age: 34 Year
  Sex: Male

DRUGS (11)
  1. OLANZAPINE [Suspect]
     Active Substance: OLANZAPINE
     Indication: Schizophrenia
     Dosage: 10 MILLIGRAM, ONCE A DAY
     Route: 048
  2. OLANZAPINE [Suspect]
     Active Substance: OLANZAPINE
     Dosage: 20 MILLIGRAM, ONCE A DAY
     Route: 048
  3. OLANZAPINE [Suspect]
     Active Substance: OLANZAPINE
     Indication: Schizophrenia
     Route: 048
  4. OLANZAPINE [Suspect]
     Active Substance: OLANZAPINE
     Dosage: 20 MILLIGRAM, ONCE A DAY
     Route: 065
  5. OLANZAPINE [Suspect]
     Active Substance: OLANZAPINE
     Route: 048
  6. OLANZAPINE [Suspect]
     Active Substance: OLANZAPINE
     Route: 048
  7. OLANZAPINE [Suspect]
     Active Substance: OLANZAPINE
     Route: 048
  8. OLANZAPINE [Suspect]
     Active Substance: OLANZAPINE
     Dosage: 20 MILLIGRAM, ONCE A DAY
     Route: 048
  9. OLANZAPINE [Suspect]
     Active Substance: OLANZAPINE
     Route: 048
  10. OLANZAPINE [Suspect]
     Active Substance: OLANZAPINE
     Route: 048
  11. HALOPERIDOL [Suspect]
     Active Substance: HALOPERIDOL
     Indication: Schizophrenia
     Dosage: 2.5 MILLIGRAM, ONCE A DAY
     Route: 030

REACTIONS (20)
  - Pulmonary embolism [Fatal]
  - Pulmonary oedema [Fatal]
  - Haemorrhagic infarction [Fatal]
  - Pulmonary infarction [Fatal]
  - Pulseless electrical activity [Fatal]
  - Cardiac arrest [Fatal]
  - Drug ineffective [Unknown]
  - Hallucination, auditory [Unknown]
  - Eating disorder [Unknown]
  - Malaise [Unknown]
  - Schizophrenia [Unknown]
  - Treatment noncompliance [Unknown]
  - Negativism [Unknown]
  - Nausea [Unknown]
  - Intentional dose omission [Unknown]
  - Asthenia [Unknown]
  - Burning sensation [Unknown]
  - Abdominal pain [Unknown]
  - Chest pain [Unknown]
  - Vomiting [Unknown]
